FAERS Safety Report 8943775 (Version 1)
Quarter: 2012Q4

REPORT INFORMATION
  Report Type: 
  Country: US (occurrence: US)
  Receive Date: 20121204
  Receipt Date: 20121204
  Transmission Date: 20130627
  Serious: Yes (Other)
  Sender: FDA-Public Use
  Company Number: US-PFIZER INC-2012303834

PATIENT
  Age: 77 Year
  Sex: Female
  Weight: 69.8 kg

DRUGS (1)
  1. LYRICA [Suspect]
     Indication: NERVE PAIN
     Dosage: 75 mg, 1x/day
     Route: 048
     Dates: start: 20121129

REACTIONS (5)
  - Haemorrhage [Unknown]
  - Gastrooesophageal reflux disease [Unknown]
  - Dysphagia [Unknown]
  - Fatigue [Unknown]
  - Pain [Unknown]
